FAERS Safety Report 24191101 (Version 1)
Quarter: 2024Q3

REPORT INFORMATION
  Report Type: Spontaneous
  Country: FR (occurrence: FR)
  Receive Date: 20240808
  Receipt Date: 20240808
  Transmission Date: 20241016
  Serious: Yes (Life-Threatening)
  Sender: TEVA
  Company Number: None

PATIENT
  Age: 77 Year
  Sex: Male

DRUGS (12)
  1. FLUCONAZOLE [Interacting]
     Active Substance: FLUCONAZOLE
     Indication: Fungal infection
     Route: 048
     Dates: start: 20240430
  2. TROPATEPINE HYDROCHLORIDE [Concomitant]
     Active Substance: TROPATEPINE HYDROCHLORIDE
     Indication: Product used for unknown indication
     Route: 048
     Dates: start: 20240502
  3. DEPAKOTE [Concomitant]
     Active Substance: DIVALPROEX SODIUM
     Indication: Product used for unknown indication
     Route: 048
     Dates: start: 20240502
  4. ENOXAPARIN SODIUM [Concomitant]
     Active Substance: ENOXAPARIN SODIUM
     Indication: Product used for unknown indication
     Dosage: ENOXAPARIN SODIUM (MAMMAL/PIG/GUTTUM MUCOSA)
     Route: 058
     Dates: start: 20240426
  5. ZYPREXA [Concomitant]
     Active Substance: OLANZAPINE
     Indication: Product used for unknown indication
     Route: 048
     Dates: start: 20240502
  6. MORPHINE [Concomitant]
     Active Substance: MORPHINE
     Indication: Product used for unknown indication
     Route: 042
     Dates: start: 20240423, end: 20240423
  7. CHLORPROMAZINE [Interacting]
     Active Substance: CHLORPROMAZINE
     Indication: Product used for unknown indication
     Dosage: SCORED FILM-COATED TABLET
     Route: 042
     Dates: start: 20240424, end: 20240503
  8. KETAMINE [Concomitant]
     Active Substance: KETAMINE
     Indication: Product used for unknown indication
     Route: 042
     Dates: start: 20240425, end: 20240502
  9. OXYCODONE [Interacting]
     Active Substance: OXYCODONE
     Indication: Pain
     Dosage: OXYCODONE MEDAC
     Route: 042
     Dates: start: 20240424, end: 20240504
  10. MIDAZOLAM [Interacting]
     Active Substance: MIDAZOLAM
     Indication: Anxiety
     Dosage: MIDAZOLAM VIATRIS
     Route: 042
     Dates: start: 20240427
  11. PIPERACILLIN SODIUM\TAZOBACTAM SODIUM [Concomitant]
     Active Substance: PIPERACILLIN SODIUM\TAZOBACTAM SODIUM
     Indication: Product used for unknown indication
     Dosage: PIPERACILLINE TAZOBACTAM ARROW
     Route: 042
     Dates: start: 20240424
  12. BIMATOPROST\TIMOLOL [Concomitant]
     Active Substance: BIMATOPROST\TIMOLOL
     Indication: Product used for unknown indication
     Route: 065
     Dates: start: 20240503

REACTIONS (1)
  - Drug interaction [Not Recovered/Not Resolved]

NARRATIVE: CASE EVENT DATE: 20240430
